FAERS Safety Report 6096060-5 (Version None)
Quarter: 2009Q1

REPORT INFORMATION
  Report Type: 
  Country: None (occurrence: None)
  Receive Date: 20090227
  Receipt Date: 20080822
  Transmission Date: 20090719
  Serious: No
  Sender: FDA-Public Use
  Company Number: A0743971A

PATIENT
  Age: 31 Year
  Sex: Male

DRUGS (3)
  1. LAMICTAL [Suspect]
     Dosage: 25MG PER DAY
     Route: 048
     Dates: start: 20080801
  2. ADDERALL 10 [Concomitant]
  3. CLONAZEPAM [Concomitant]

REACTIONS (2)
  - DRUG INEFFECTIVE [None]
  - PALPITATIONS [None]
